FAERS Safety Report 13032764 (Version 1)
Quarter: 2016Q4

REPORT INFORMATION
  Report Type: Spontaneous
  Country: US (occurrence: US)
  Receive Date: 20161215
  Receipt Date: 20161215
  Transmission Date: 20170207
  Serious: No
  Sender: FDA-Public Use
  Company Number: US-BAXALTA-2016BLT009297

PATIENT
  Sex: Female

DRUGS (3)
  1. QUINAPRIL. [Concomitant]
     Active Substance: QUINAPRIL
     Indication: HYPERTENSION
     Route: 065
  2. CUVITRU [Suspect]
     Active Substance: HUMAN IMMUNOGLOBULIN G
     Indication: PRIMARY IMMUNODEFICIENCY SYNDROME
     Dosage: 8 G, EVERY 10 DY
     Route: 058
     Dates: start: 20161129
  3. CUVITRU [Suspect]
     Active Substance: HUMAN IMMUNOGLOBULIN G
     Indication: SINUSITIS

REACTIONS (5)
  - Infusion site haemorrhage [Unknown]
  - Condition aggravated [Recovered/Resolved]
  - Pain [Recovered/Resolved]
  - Abdominal pain upper [Recovered/Resolved]
  - Infusion site erythema [Recovered/Resolved]

NARRATIVE: CASE EVENT DATE: 20161209
